FAERS Safety Report 8189117-6 (Version None)
Quarter: 2012Q1

REPORT INFORMATION
  Report Type: 
  Country: None (occurrence: None)
  Receive Date: 20120307
  Receipt Date: 20120222
  Transmission Date: 20120608
  Serious: Yes (Hospitalization)
  Sender: FDA-Public Use
  Company Number: GB-RANBAXY-2012R1-52347

PATIENT
  Age: 39 Year

DRUGS (4)
  1. CLARITHROMYCIN [Suspect]
     Dosage: UNK
     Route: 042
     Dates: start: 20111030, end: 20111101
  2. CLARITHROMYCIN [Suspect]
     Indication: PNEUMONIA
     Dosage: UNK
     Route: 065
  3. CLARITHROMYCIN [Suspect]
     Indication: URINARY TRACT INFECTION
  4. CLARITHROMYCIN [Suspect]

REACTIONS (10)
  - PAIN [None]
  - COUGH [None]
  - OEDEMA PERIPHERAL [None]
  - PARAESTHESIA [None]
  - DRUG ADMINISTRATION ERROR [None]
  - LOSS OF PROPRIOCEPTION [None]
  - BURNING SENSATION [None]
  - LIMB DISCOMFORT [None]
  - SLEEP DISORDER [None]
  - ARTHRALGIA [None]
